FAERS Safety Report 22152397 (Version 1)
Quarter: 2023Q1

REPORT INFORMATION
  Report Type: Spontaneous
  Country: BR (occurrence: BR)
  Receive Date: 20230329
  Receipt Date: 20230329
  Transmission Date: 20230418
  Serious: Yes (Hospitalization, Other)
  Sender: FDA-Public Use
  Company Number: BR-BAXTER-2023BAX016618

PATIENT
  Sex: Male

DRUGS (9)
  1. CYCLOPHOSPHAMIDE [Suspect]
     Active Substance: CYCLOPHOSPHAMIDE
     Indication: Plasma cell myeloma
     Dosage: FIRST LINE TREATMENT WITH 12 CYCLES AS A PART OF VCD (FROM SEP-2021 TO AUG-2022)
     Route: 065
  2. BORTEZOMIB [Suspect]
     Active Substance: BORTEZOMIB
     Indication: Plasma cell myeloma
     Dosage: FIRST LINE TREATMENT WITH 12 CYCLES AS A PART OF VCD (FROM SEP-2021 TO AUG-2022)
     Route: 065
  3. BORTEZOMIB [Suspect]
     Active Substance: BORTEZOMIB
     Dosage: SECOND LINE TREATMENT (RESCUE IN SEP-2022) AS A PART OF DARA-VRD (FROM OCT-2022 TO FEB-2023)
     Route: 065
  4. DEXAMETHASONE [Suspect]
     Active Substance: DEXAMETHASONE
     Indication: Plasma cell myeloma
     Dosage: FIRST LINE TREATMENT WITH 12 CYCLES AS A PART OF VCD (FROM SEP-2021 TO AUG-2022)
     Route: 065
  5. DEXAMETHASONE [Suspect]
     Active Substance: DEXAMETHASONE
     Dosage: SECOND LINE TREATMENT (RESCUE IN SEP-2022) AS A PART OF DARA-VRD (FROM OCT-2022 TO FEB-2023)
     Route: 065
  6. DEXAMETHASONE [Suspect]
     Active Substance: DEXAMETHASONE
     Dosage: THIRD LINE TREATMENT AS A PART OF ISA-KD REGIMEN (ONGOING)
     Route: 065
     Dates: start: 20230313
  7. DARATUMUMAB [Suspect]
     Active Substance: DARATUMUMAB
     Indication: Plasma cell myeloma
     Dosage: SECOND LINE TREATMENT (RESCUE IN SEP-2022) AS A PART OF DARA-VRD (FROM OCT-2022 TO FEB-2023)
     Route: 065
  8. LENALIDOMIDE [Suspect]
     Active Substance: LENALIDOMIDE
     Indication: Plasma cell myeloma
     Dosage: SECOND LINE TREATMENT (RESCUE IN SEP-2022) AS A PART OF DARA-VRD (FROM OCT-2022 TO FEB-2023)
     Route: 065
  9. ZOLEDRONIC ACID [Concomitant]
     Active Substance: ZOLEDRONIC ACID
     Dosage: UNK (SUPPORT)
     Route: 065

REACTIONS (10)
  - Plasma cell leukaemia [Unknown]
  - Disease recurrence [Unknown]
  - Plasma cell myeloma [Unknown]
  - Pancytopenia [Recovered/Resolved]
  - Neutropenia [Recovered/Resolved]
  - Anaemia [Recovered/Resolved]
  - Condition aggravated [Unknown]
  - Inadequate analgesia [Unknown]
  - Blood stem cell transplant failure [Unknown]
  - Pain [Unknown]
